FAERS Safety Report 6946073-3 (Version None)
Quarter: 2010Q3

REPORT INFORMATION
  Report Type: 
  Country: None (occurrence: None)
  Receive Date: 20100824
  Receipt Date: 20100813
  Transmission Date: 20110219
  Serious: Yes (Hospitalization)
  Sender: FDA-Public Use
  Company Number: 003035

PATIENT
  Sex: Female
  Weight: 58 kg

DRUGS (4)
  1. VIMPAT [Suspect]
     Indication: EPILEPSY
     Dosage: 50 TILL 100 MG (TITRATION EVERY 2 WEEKS, ORAL
     Route: 048
  2. VIMPAT [Suspect]
     Indication: PETIT MAL EPILEPSY
     Dosage: 50 TILL 100 MG (TITRATION EVERY 2 WEEKS, ORAL
     Route: 048
  3. DEPAKENE [Concomitant]
  4. ORAL CONTRACEPTIVE NOS [Concomitant]

REACTIONS (1)
  - CONVULSION [None]
